FAERS Safety Report 8067080-6 (Version None)
Quarter: 2012Q1

REPORT INFORMATION
  Report Type: 
  Country: None (occurrence: None)
  Receive Date: 20120124
  Receipt Date: 20120119
  Transmission Date: 20120608
  Serious: Yes (Other)
  Sender: FDA-Public Use
  Company Number: GB-PFIZER INC-2012016265

PATIENT
  Age: 43 Year
  Sex: Female
  Weight: 106 kg

DRUGS (4)
  1. AMLODIPINE [Concomitant]
     Dosage: 10 MG, UNK
     Route: 048
  2. BENDROFLUMETHIAZIDE [Concomitant]
     Dosage: 2.5 MG, UNK
     Route: 048
  3. PERINDOPRIL [Concomitant]
     Dosage: 8 MG, UNK
  4. VARENICLINE TARTRATE [Suspect]
     Indication: SMOKING CESSATION THERAPY
     Dosage: 2 MG, UNK
     Route: 048
     Dates: start: 20111125, end: 20111215

REACTIONS (7)
  - HEADACHE [None]
  - VOMITING [None]
  - FEELING ABNORMAL [None]
  - SUICIDAL IDEATION [None]
  - TREMOR [None]
  - SEDATION [None]
  - NAUSEA [None]
